FAERS Safety Report 4483772-X (Version None)
Quarter: 2004Q4

REPORT INFORMATION
  Report Type: 
  Country: None (occurrence: None)
  Receive Date: 20041025
  Receipt Date: 20041012
  Transmission Date: 20050328
  Serious: Yes (Death, Life-Threatening)
  Sender: FDA-Public Use
  Company Number: FR-ABBOTT-04P-056-0277655-00

PATIENT
  Age: 68 Year
  Sex: Male
  Weight: 75 kg

DRUGS (7)
  1. ISOPTIN [Suspect]
     Indication: HYPERTENSION
     Route: 048
     Dates: start: 20030905, end: 20030918
  2. VORICONAZOLE [Interacting]
     Indication: ASPERGILLOSIS
     Route: 048
     Dates: start: 20030904, end: 20030918
  3. AMPHOTERICIN B [Concomitant]
     Indication: ASPERGILLOSIS
     Route: 042
     Dates: start: 20030909, end: 20030918
  4. POTASSIUM [Concomitant]
     Indication: DRUG USE FOR UNKNOWN INDICATION
     Dates: end: 20030918
  5. ACETYLSALICYLATE LYSINE [Concomitant]
     Indication: DRUG USE FOR UNKNOWN INDICATION
     Dates: end: 20030918
  6. ALPRAZOLAM [Concomitant]
     Indication: DRUG USE FOR UNKNOWN INDICATION
     Dates: end: 20030918
  7. HEPARIN CALCIUM [Concomitant]
     Indication: DRUG USE FOR UNKNOWN INDICATION
     Dates: end: 20030918

REACTIONS (10)
  - BRADYCARDIA [None]
  - CARDIOGENIC SHOCK [None]
  - CAROTID ARTERY THROMBOSIS [None]
  - COMA [None]
  - DECEREBRATION [None]
  - DEPRESSED LEVEL OF CONSCIOUSNESS [None]
  - DRUG INTERACTION [None]
  - GENERAL PHYSICAL HEALTH DETERIORATION [None]
  - HEMIPLEGIA [None]
  - HYPERTENSION [None]
